FAERS Safety Report 5846156-5 (Version None)
Quarter: 2008Q3

REPORT INFORMATION
  Report Type: 
  Country: None (occurrence: None)
  Receive Date: 20080813
  Receipt Date: 20080805
  Transmission Date: 20090109
  Serious: Yes (Hospitalization)
  Sender: FDA-Public Use
  Company Number: 2008AL008184

PATIENT
  Age: 71 Year
  Sex: Female
  Weight: 94.3482 kg

DRUGS (1)
  1. DIGOXIN [Suspect]
     Indication: ATRIAL FIBRILLATION
     Dosage: 0.125MG, DAILY, PO
     Route: 048

REACTIONS (5)
  - CEREBROVASCULAR ACCIDENT [None]
  - FLUID RETENTION [None]
  - LOSS OF CONSCIOUSNESS [None]
  - PALPITATIONS [None]
  - RENAL IMPAIRMENT [None]
